FAERS Safety Report 9110690 (Version 2)
Quarter: 2014Q1

REPORT INFORMATION
  Report Type: Spontaneous
  Country: US (occurrence: US)
  Receive Date: 20130219
  Receipt Date: 20140213
  Transmission Date: 20141002
  Serious: No
  Sender: FDA-Public Use
  Company Number: US-BRISTOL-MYERS SQUIBB COMPANY-17201682

PATIENT
  Age: 52 Year
  Sex: Female
  Weight: 68.03 kg

DRUGS (1)
  1. ORENCIA [Suspect]
     Indication: RHEUMATOID ARTHRITIS
     Dosage: LAST INFUSION :13NOV2012 ,28DEC2012?STRENGTH:250MG?FORM:INJ,POWDER,LYOPHILIZED
     Route: 042
     Dates: start: 2012

REACTIONS (3)
  - Pain [Unknown]
  - Cystitis [Recovered/Resolved]
  - Gastrointestinal disorder [Unknown]
